FAERS Safety Report 7721538-5 (Version None)
Quarter: 2011Q3

REPORT INFORMATION
  Report Type: 
  Country: None (occurrence: None)
  Receive Date: 20110831
  Receipt Date: 20110824
  Transmission Date: 20111222
  Serious: Yes (Death)
  Sender: FDA-Public Use
  Company Number: CN-JNJFOC-20110812693

PATIENT
  Age: 65 Year
  Sex: Male

DRUGS (2)
  1. TOPAMAX [Suspect]
     Indication: CEREBRAL HAEMORRHAGE
     Route: 048
     Dates: start: 20110301
  2. TOPAMAX [Suspect]
     Indication: EPILEPSY
     Route: 048
     Dates: start: 20110301

REACTIONS (1)
  - CEREBRAL HAEMORRHAGE [None]
